FAERS Safety Report 23063469 (Version 1)
Quarter: 2023Q4

REPORT INFORMATION
  Report Type: Spontaneous
  Country: US (occurrence: US)
  Receive Date: 20231013
  Receipt Date: 20231013
  Transmission Date: 20240110
  Serious: Yes (Other)
  Sender: FDA-Public Use
  Company Number: US-PFM-2023-04657

PATIENT
  Sex: Female
  Weight: 6.599 kg

DRUGS (2)
  1. HEMANGEOL [Suspect]
     Active Substance: PROPRANOLOL HYDROCHLORIDE
     Indication: Haemangioma
     Dosage: 2.7 ML, BID (2/DAY)
     Route: 048
  2. HEMANGEOL [Suspect]
     Active Substance: PROPRANOLOL HYDROCHLORIDE
     Dosage: 1 ML, BID (2/DAY)
     Route: 065

REACTIONS (5)
  - Haematochezia [Recovered/Resolved]
  - Nasal congestion [Unknown]
  - Mucous stools [Unknown]
  - Muscle spasms [Unknown]
  - Pyrexia [Unknown]
